FAERS Safety Report 6375943-2 (Version None)
Quarter: 2009Q3

REPORT INFORMATION
  Report Type: 
  Country: None (occurrence: None)
  Receive Date: 20090918
  Receipt Date: 20090831
  Transmission Date: 20100115
  Serious: Yes (Hospitalization, Other)
  Sender: FDA-Public Use
  Company Number: CL-64-2009

PATIENT
  Age: 59 Year
  Sex: Female

DRUGS (6)
  1. CIPROFLOXACIN HYDROCHLORIDE [Suspect]
     Indication: RENAL ABSCESS
     Dosage: ACCUMULATIVE DOSE 15 G
  2. METRONIDAZOLE [Suspect]
     Indication: RENAL ABSCESS
     Dosage: ACCUMULATIVE DOSE } 9 G
  3. LAMIVUDINE [Concomitant]
  4. SPIRONOLACTONE [Concomitant]
  5. FUROSEMIDE [Concomitant]
  6. LACTULOSE [Concomitant]

REACTIONS (5)
  - CONFUSIONAL STATE [None]
  - DISTURBANCE IN ATTENTION [None]
  - DYSKINESIA [None]
  - IRRITABILITY [None]
  - MENTAL STATUS CHANGES [None]
